FAERS Safety Report 10237363 (Version 2)
Quarter: 2014Q2

REPORT INFORMATION
  Report Type: Report from Study
  Country: DE (occurrence: TR)
  Receive Date: 20140613
  Receipt Date: 20140620
  Transmission Date: 20141212
  Serious: Yes (Death, Hospitalization)
  Sender: FDA-Public Use
  Company Number: DE-ACTELION-A-NJ2014-100279

PATIENT
  Age: 49 Year
  Sex: Female

DRUGS (1)
  1. VENTAVIS [Suspect]
     Indication: PULMONARY HYPERTENSION
     Dosage: 1 PUFF, Q4HRS
     Route: 055
     Dates: start: 20120824, end: 20140525

REACTIONS (4)
  - Death [Fatal]
  - Ascites [Unknown]
  - Swelling [Unknown]
  - Pulmonary hypertension [Unknown]
